FAERS Safety Report 8424269-1 (Version None)
Quarter: 2012Q2

REPORT INFORMATION
  Report Type: 
  Country: None (occurrence: None)
  Receive Date: 20120608
  Receipt Date: 20120105
  Transmission Date: 20120825
  Serious: No
  Sender: FDA-Public Use
  Company Number: US-ASTRAZENECA-2011SE74795

PATIENT
  Age: 6 Year
  Sex: Female

DRUGS (1)
  1. PULMICORT FLEXHALER [Suspect]
     Indication: ASTHMA
     Dosage: 180MCG, 2 PUFFS QD WHEN SHE IS COMING DOWN COLD DURING NORMAL DAYS 1 PUFF QD
     Route: 055
     Dates: start: 20111205

REACTIONS (2)
  - OFF LABEL USE [None]
  - ASTHMA [None]
